FAERS Safety Report 10196610 (Version 1)
Quarter: 2014Q2

REPORT INFORMATION
  Report Type: Spontaneous
  Country: US (occurrence: None)
  Receive Date: 20140523
  Receipt Date: 20140523
  Transmission Date: 20141212
  Serious: Yes (Hospitalization)
  Sender: FDA-Public Use
  Company Number: None

PATIENT
  Age: 79 Year
  Sex: Female
  Weight: 68.1 kg

DRUGS (1)
  1. FOSINOPRIL [Suspect]
     Indication: HYPERTENSION
     Route: 048
     Dates: start: 20050516, end: 20140508

REACTIONS (3)
  - Swollen tongue [None]
  - Dysphonia [None]
  - Angioedema [None]
